FAERS Safety Report 4478178-3 (Version None)
Quarter: 2004Q3

REPORT INFORMATION
  Report Type: 
  Country: None (occurrence: None)
  Receive Date: 20040923
  Receipt Date: 20040721
  Transmission Date: 20050211
  Serious: No
  Sender: FDA-Public Use
  Company Number: USA040773310

PATIENT
  Age: 74 Year
  Sex: Female

DRUGS (4)
  1. FORTEO [Suspect]
     Indication: PROPHYLAXIS
     Dates: start: 20040601
  2. FORTEO [Suspect]
     Indication: STRESS FRACTURE
     Dates: start: 20040601
  3. CALTRATE + D [Concomitant]
  4. MOBIC [Concomitant]

REACTIONS (2)
  - FEELING ABNORMAL [None]
  - MUSCULOSKELETAL DISCOMFORT [None]
